FAERS Safety Report 5010893-5 (Version None)
Quarter: 2006Q2

REPORT INFORMATION
  Report Type: 
  Country: None (occurrence: None)
  Receive Date: 20060525
  Receipt Date: 20050420
  Transmission Date: 20061013
  Serious: Yes (Disabling)
  Sender: FDA-Public Use
  Company Number: US-MERCK-0504USA03685

PATIENT
  Age: 79 Year
  Sex: Female

DRUGS (4)
  1. FOSAMAX [Suspect]
     Indication: OSTEOPOROSIS
     Route: 048
     Dates: start: 19960801, end: 20040615
  2. FOSAMAX [Suspect]
     Route: 048
     Dates: start: 20050801, end: 20060101
  3. VITAMINS (UNSPECIFIED) [Concomitant]
     Route: 065
  4. CALCIUM (UNSPECIFIED) AND VITAMIN D (UNSPECIFIED) [Concomitant]
     Route: 065

REACTIONS (4)
  - BONE DENSITY DECREASED [None]
  - DYSPHAGIA [None]
  - MYALGIA [None]
  - RESORPTION BONE INCREASED [None]
